FAERS Safety Report 18706672 (Version 4)
Quarter: 2021Q1

REPORT INFORMATION
  Report Type: Report from Study
  Country: US (occurrence: US)
  Receive Date: 20210106
  Receipt Date: 20210310
  Transmission Date: 20210419
  Serious: Yes (Hospitalization)
  Sender: FDA-Public Use
  Company Number: NVSC2021US001242

PATIENT
  Sex: Female

DRUGS (2)
  1. PIQRAY [Suspect]
     Active Substance: ALPELISIB
     Dosage: 250 MG, QD
     Route: 048
  2. PIQRAY [Suspect]
     Active Substance: ALPELISIB
     Indication: BREAST CANCER METASTATIC
     Dosage: 300 MG, QD
     Route: 048

REACTIONS (9)
  - Mouth ulceration [Recovered/Resolved]
  - Hyperglycaemia [Recovering/Resolving]
  - Taste disorder [Recovered/Resolved]
  - Dry mouth [Recovered/Resolved]
  - Decreased appetite [Recovering/Resolving]
  - Rash [Recovering/Resolving]
  - Abdominal pain upper [Not Recovered/Not Resolved]
  - Gallbladder disorder [Unknown]
  - Glossodynia [Recovered/Resolved]
